FAERS Safety Report 18130735 (Version 1)
Quarter: 2020Q3

REPORT INFORMATION
  Report Type: Spontaneous
  Country: MY (occurrence: MY)
  Receive Date: 20200810
  Receipt Date: 20200810
  Transmission Date: 20201103
  Serious: Yes (Death)
  Sender: FDA-Public Use
  Company Number: MY-AMNEAL PHARMACEUTICALS-2020-AMRX-02350

PATIENT
  Age: 41 Year
  Sex: Female

DRUGS (3)
  1. MYCOPHENOLATE MOFETIL. [Suspect]
     Active Substance: MYCOPHENOLATE MOFETIL
     Indication: IGA NEPHROPATHY
     Dosage: UNK
     Route: 065
  2. AZATHIOPRINE. [Suspect]
     Active Substance: AZATHIOPRINE
     Indication: IGA NEPHROPATHY
     Dosage: UNK
     Route: 065
  3. PREDNISOLONE. [Suspect]
     Active Substance: PREDNISOLONE
     Indication: IGA NEPHROPATHY
     Dosage: UNK
     Route: 065

REACTIONS (3)
  - Haemophagocytic lymphohistiocytosis [Fatal]
  - Histoplasmosis disseminated [Fatal]
  - Multiple organ dysfunction syndrome [Fatal]
